FAERS Safety Report 9017277 (Version 5)
Quarter: 2014Q2

REPORT INFORMATION
  Report Type: Spontaneous
  Country: US (occurrence: US)
  Receive Date: 20130117
  Receipt Date: 20140618
  Transmission Date: 20141212
  Serious: No
  Sender: FDA-Public Use
  Company Number: US-PFIZER INC-2013016375

PATIENT
  Age: 76 Year
  Sex: Female
  Weight: 63 kg

DRUGS (2)
  1. NARDIL [Suspect]
     Indication: MAJOR DEPRESSION
     Dosage: 15 MG, 2X/DAY
     Route: 048
     Dates: end: 2012
  2. COREG CR [Concomitant]
     Indication: HYPERTENSION
     Dosage: 20 MG, 1X/DAY

REACTIONS (1)
  - Drug effect incomplete [Unknown]
